FAERS Safety Report 7352660-3 (Version None)
Quarter: 2011Q1

REPORT INFORMATION
  Report Type: 
  Country: None (occurrence: None)
  Receive Date: 20110301
  Receipt Date: 20100831
  Transmission Date: 20110831
  Serious: Yes (Other)
  Sender: FDA-Public Use
  Company Number: US-JNJFOC-20070303232

PATIENT
  Age: 15 Year
  Sex: Male
  Weight: 44 kg

DRUGS (6)
  1. ADVAIR DISKUS 100/50 [Concomitant]
  2. IBUPROFEN [Suspect]
     Indication: PRODUCT USED FOR UNKNOWN INDICATION
     Dates: start: 20061220
  3. UNKNOWN MEDICATION (ALL OTHER THERAPEUTIC PRODUCTS) [Concomitant]
  4. PENICILLIN VK [Concomitant]
  5. SINGULAIR [Concomitant]
  6. NORDITROPIN [Concomitant]

REACTIONS (1)
  - HYPERSENSITIVITY [None]
